FAERS Safety Report 7986319-6 (Version None)
Quarter: 2011Q4

REPORT INFORMATION
  Report Type: 
  Country: None (occurrence: None)
  Receive Date: 20111216
  Receipt Date: 20110706
  Transmission Date: 20120403
  Serious: No
  Sender: FDA-Public Use
  Company Number: US-BRISTOL-MYERS SQUIBB COMPANY-15878499

PATIENT
  Age: 54 Year
  Sex: Male
  Weight: 126 kg

DRUGS (1)
  1. ABILIFY [Suspect]
     Indication: DEPRESSION
     Dosage: STARTED AS 2MG
     Route: 048
     Dates: start: 20110101

REACTIONS (1)
  - NERVOUSNESS [None]
